FAERS Safety Report 14705819 (Version 3)
Quarter: 2019Q4

REPORT INFORMATION
  Report Type: Spontaneous
  Country: US (occurrence: US)
  Receive Date: 20180402
  Receipt Date: 20191003
  Transmission Date: 20200122
  Serious: Yes (Other)
  Sender: FDA-Public Use
  Company Number: US-ASTRAZENECA-2018SE38946

PATIENT
  Age: 20580 Day
  Sex: Male
  Weight: 166.9 kg

DRUGS (55)
  1. NEXIUM [Suspect]
     Active Substance: ESOMEPRAZOLE MAGNESIUM
     Indication: GASTROOESOPHAGEAL REFLUX DISEASE
     Dosage: GENERIC
     Route: 065
     Dates: start: 20050818, end: 20150223
  2. NEXIUM [Suspect]
     Active Substance: ESOMEPRAZOLE MAGNESIUM
     Indication: GASTROOESOPHAGEAL REFLUX DISEASE
     Route: 048
     Dates: start: 20150223
  3. NEXIUM [Suspect]
     Active Substance: ESOMEPRAZOLE MAGNESIUM
     Indication: GASTROOESOPHAGEAL REFLUX DISEASE
     Route: 048
     Dates: start: 20160119, end: 20170331
  4. NEXIUM 24HR [Suspect]
     Active Substance: ESOMEPRAZOLE MAGNESIUM
     Route: 048
     Dates: start: 200101, end: 201705
  5. PRILOSEC [Suspect]
     Active Substance: OMEPRAZOLE MAGNESIUM
     Indication: GASTROOESOPHAGEAL REFLUX DISEASE
     Dosage: GENERIC-20 MG
     Route: 065
     Dates: start: 20160720, end: 20160722
  6. AMOXICILLIN. [Concomitant]
     Active Substance: AMOXICILLIN
     Indication: INFECTION
     Dates: start: 20110914, end: 20140829
  7. FOLIC ACID. [Concomitant]
     Active Substance: FOLIC ACID
  8. METOPROLOL. [Concomitant]
     Active Substance: METOPROLOL
  9. ALLOPURINOL. [Concomitant]
     Active Substance: ALLOPURINOL
  10. CEFALEXIN [Concomitant]
     Active Substance: CEPHALEXIN
  11. FENTANYL. [Concomitant]
     Active Substance: FENTANYL
  12. PRILOSEC OTC [Suspect]
     Active Substance: OMEPRAZOLE MAGNESIUM
     Route: 048
     Dates: start: 200101, end: 201705
  13. PREVACID [Suspect]
     Active Substance: LANSOPRAZOLE
     Dosage: GENERIC
     Route: 065
  14. ATORVASTATIN [Concomitant]
     Active Substance: ATORVASTATIN
     Route: 048
     Dates: start: 20151021
  15. CARVEDILOL. [Concomitant]
     Active Substance: CARVEDILOL
  16. COLCHICINE. [Concomitant]
     Active Substance: COLCHICINE
  17. HYDRALAZINE [Concomitant]
     Active Substance: HYDRALAZINE HYDROCHLORIDE
  18. FOLIC ACID. [Concomitant]
     Active Substance: FOLIC ACID
  19. DEXILANT [Suspect]
     Active Substance: DEXLANSOPRAZOLE
     Route: 065
     Dates: start: 200101, end: 201705
  20. CIPROFLOXACIN. [Concomitant]
     Active Substance: CIPROFLOXACIN
     Dates: start: 19941017, end: 20020407
  21. ACETAMINOPHEN. [Concomitant]
     Active Substance: ACETAMINOPHEN
     Indication: PAIN IN EXTREMITY
     Dates: start: 20060719, end: 20140918
  22. RANITIDINE. [Concomitant]
     Active Substance: RANITIDINE
     Indication: ANALGESIC THERAPY
     Dates: start: 201202, end: 201212
  23. FLUOXETINE [Concomitant]
     Active Substance: FLUOXETINE HYDROCHLORIDE
  24. NEXIUM [Suspect]
     Active Substance: ESOMEPRAZOLE MAGNESIUM
     Indication: GASTROOESOPHAGEAL REFLUX DISEASE
     Route: 048
     Dates: start: 200101, end: 201705
  25. NEXIUM [Suspect]
     Active Substance: ESOMEPRAZOLE MAGNESIUM
     Indication: GASTROOESOPHAGEAL REFLUX DISEASE
     Route: 048
     Dates: start: 20150120, end: 20150825
  26. PROTONIX [Suspect]
     Active Substance: PANTOPRAZOLE SODIUM
     Indication: GASTROOESOPHAGEAL REFLUX DISEASE
     Dosage: GENERI40 MG IV
     Route: 065
     Dates: start: 20140526, end: 20140826
  27. PROTONIX [Suspect]
     Active Substance: PANTOPRAZOLE SODIUM
     Indication: GASTROOESOPHAGEAL REFLUX DISEASE
     Dosage: GENERI-40 MG IV
     Route: 065
     Dates: start: 20140903, end: 20140908
  28. LISINOPRIL. [Concomitant]
     Active Substance: LISINOPRIL
     Dates: start: 20060204, end: 20141023
  29. ASPART [Concomitant]
  30. HUMALOG [Concomitant]
     Active Substance: INSULIN LISPRO
  31. TYLENOL [Concomitant]
     Active Substance: ACETAMINOPHEN
  32. NEXIUM [Suspect]
     Active Substance: ESOMEPRAZOLE MAGNESIUM
     Indication: GASTROOESOPHAGEAL REFLUX DISEASE
     Route: 048
  33. PRILOSEC [Suspect]
     Active Substance: OMEPRAZOLE MAGNESIUM
     Indication: GASTROOESOPHAGEAL REFLUX DISEASE
     Route: 048
     Dates: start: 200101, end: 201705
  34. PROTONIX [Suspect]
     Active Substance: PANTOPRAZOLE SODIUM
     Indication: GASTROOESOPHAGEAL REFLUX DISEASE
     Route: 065
     Dates: start: 200101, end: 201705
  35. IBUPROFEN. [Concomitant]
     Active Substance: IBUPROFEN
     Dates: start: 19941108, end: 20010727
  36. GABAPENTIN. [Concomitant]
     Active Substance: GABAPENTIN
     Route: 065
     Dates: start: 20160711
  37. LANTUS [Concomitant]
     Active Substance: INSULIN GLARGINE
  38. CODEINE [Concomitant]
     Active Substance: CODEINE
  39. PREVACID [Suspect]
     Active Substance: LANSOPRAZOLE
     Route: 065
     Dates: start: 200101, end: 201705
  40. PREVACID 24 HR [Suspect]
     Active Substance: LANSOPRAZOLE
     Dosage: GENERIC
     Route: 065
  41. BENAZEPRIL [Concomitant]
     Active Substance: BENAZEPRIL HYDROCHLORIDE
     Indication: HYPERTENSION
     Dates: start: 20010123, end: 20031103
  42. FUROSEMIDE. [Concomitant]
     Active Substance: FUROSEMIDE
     Indication: CARDIAC FAILURE
     Dates: start: 20140528, end: 20140824
  43. MUPIROCIN. [Concomitant]
     Active Substance: MUPIROCIN
  44. TORSEMIDE. [Concomitant]
     Active Substance: TORSEMIDE
  45. NOVOLOG [Concomitant]
     Active Substance: INSULIN ASPART
  46. LEVOFLOXACIN. [Concomitant]
     Active Substance: LEVOFLOXACIN
  47. VITAMIN D [Concomitant]
     Active Substance: VITAMIN D NOS
  48. NEXIUM [Suspect]
     Active Substance: ESOMEPRAZOLE MAGNESIUM
     Indication: GASTROOESOPHAGEAL REFLUX DISEASE
     Dosage: GENERIC
     Route: 065
     Dates: start: 20140918
  49. PRILOSEC [Suspect]
     Active Substance: OMEPRAZOLE MAGNESIUM
     Indication: GASTROOESOPHAGEAL REFLUX DISEASE
     Route: 048
     Dates: start: 20151111
  50. PREVACID 24 HR [Suspect]
     Active Substance: LANSOPRAZOLE
     Route: 065
     Dates: start: 200101, end: 201705
  51. RENVELA [Concomitant]
     Active Substance: SEVELAMER CARBONATE
  52. ALBUTEROL. [Concomitant]
     Active Substance: ALBUTEROL
  53. HEPARIN SODIUM. [Concomitant]
     Active Substance: HEPARIN SODIUM
  54. NEXIUM [Suspect]
     Active Substance: ESOMEPRAZOLE MAGNESIUM
     Indication: GASTROOESOPHAGEAL REFLUX DISEASE
     Dosage: GENERIC
     Route: 065
     Dates: start: 20050817, end: 20061019
  55. AMLODIPINE [Concomitant]
     Active Substance: AMLODIPINE BESYLATE

REACTIONS (6)
  - Nephrogenic anaemia [Unknown]
  - Chronic kidney disease [Not Recovered/Not Resolved]
  - End stage renal disease [Not Recovered/Not Resolved]
  - Renal failure [Unknown]
  - Acute kidney injury [Unknown]
  - Chronic kidney disease-mineral and bone disorder [Unknown]

NARRATIVE: CASE EVENT DATE: 20150831
